FAERS Safety Report 8892288 (Version 1)
Quarter: 2012Q4

REPORT INFORMATION
  Report Type: 
  Country: US (occurrence: US)
  Receive Date: 20121107
  Receipt Date: 20121107
  Transmission Date: 20130627
  Serious: Yes (Other)
  Sender: FDA-Public Use
  Company Number: US-GLAXOSMITHKLINE-A0811664A

PATIENT
  Age: 55 Year
  Sex: Female
  Weight: 75.5 kg

DRUGS (2)
  1. TYKERB [Suspect]
     Indication: BREAST CANCER METASTATIC
     Dosage: 1250MG Per day
     Route: 048
     Dates: start: 20090819
  2. XELODA [Suspect]
     Indication: BREAST CANCER METASTATIC
     Dosage: 1500MG Twice per day
     Route: 048
     Dates: start: 20090819

REACTIONS (7)
  - Palmar-plantar erythrodysaesthesia syndrome [Recovered/Resolved]
  - Chapped lips [Unknown]
  - Lip ulceration [Unknown]
  - Skin ulcer [Unknown]
  - Fatigue [Unknown]
  - Arthralgia [Unknown]
  - Stomatitis [Unknown]
